FAERS Safety Report 13483769 (Version 1)
Quarter: 2017Q2

REPORT INFORMATION
  Report Type: Report from Study
  Country: None (occurrence: US)
  Receive Date: 20170426
  Receipt Date: 20170426
  Transmission Date: 20170830
  Serious: Yes (Hospitalization)
  Sender: FDA-Public Use
  Company Number: US-ABBVIE-17K-163-1845179-00

PATIENT
  Age: 59 Year
  Sex: Male

DRUGS (2)
  1. HUMIRA [Suspect]
     Active Substance: ADALIMUMAB
     Indication: CROHN^S DISEASE
     Route: 058
     Dates: start: 20161231, end: 20161231
  2. HUMIRA [Suspect]
     Active Substance: ADALIMUMAB
     Dosage: SECOND LOADING DOSE
     Route: 058
     Dates: start: 20170114, end: 20170114

REACTIONS (7)
  - Aphthous ulcer [Not Recovered/Not Resolved]
  - Hypersensitivity [Unknown]
  - Dyspnoea [Recovered/Resolved]
  - Stomatitis [Unknown]
  - Pharyngeal oedema [Recovered/Resolved]
  - Oral herpes [Not Recovered/Not Resolved]
  - Eye swelling [Not Recovered/Not Resolved]

NARRATIVE: CASE EVENT DATE: 2017
